FAERS Safety Report 7576296-4 (Version None)
Quarter: 2011Q2

REPORT INFORMATION
  Report Type: 
  Country: None (occurrence: None)
  Receive Date: 20110628
  Receipt Date: 20110225
  Transmission Date: 20111010
  Serious: No
  Sender: FDA-Public Use
  Company Number: US-BAYER-2011-018506

PATIENT
  Age: 33 Year
  Sex: Female

DRUGS (1)
  1. FINACEA [Suspect]
     Indication: ROSACEA
     Dosage: 15 %
     Dates: start: 20110209

REACTIONS (5)
  - HYPERSENSITIVITY [None]
  - PARAESTHESIA [None]
  - RASH [None]
  - FEELING HOT [None]
  - BURNING SENSATION [None]
